FAERS Safety Report 21473055 (Version 1)
Quarter: 2022Q4

REPORT INFORMATION
  Report Type: Spontaneous
  Country: AR (occurrence: AR)
  Receive Date: 20221018
  Receipt Date: 20221018
  Transmission Date: 20230113
  Serious: Yes (Other)
  Sender: FDA-Public Use
  Company Number: AR-PFIZER INC-PV202200083059

PATIENT
  Age: 55 Year
  Sex: Male
  Weight: 105 kg

DRUGS (1)
  1. VYNDAMAX [Suspect]
     Active Substance: TAFAMIDIS
     Dosage: UNK

REACTIONS (6)
  - Hypertrophic cardiomyopathy [Unknown]
  - Atrioventricular block complete [Unknown]
  - Dizziness [Unknown]
  - Chest pain [Unknown]
  - Sinus tachycardia [Unknown]
  - Amyloidosis senile [Unknown]

NARRATIVE: CASE EVENT DATE: 20210708
